FAERS Safety Report 21756012 (Version 1)
Quarter: 2022Q4

REPORT INFORMATION
  Report Type: Spontaneous
  Country: US (occurrence: None)
  Receive Date: 20221220
  Receipt Date: 20221220
  Transmission Date: 20230113
  Serious: Yes (Life-Threatening)
  Sender: FDA-Public Use
  Company Number: None

PATIENT
  Age: 41 Year
  Sex: Female

DRUGS (1)
  1. PROHANCE [Suspect]
     Active Substance: GADOTERIDOL
     Indication: Magnetic resonance imaging
     Dosage: OTHER FREQUENCY : ONCE;?
     Route: 042
     Dates: start: 20220524, end: 20220524

REACTIONS (7)
  - Pruritus [None]
  - Respiratory distress [None]
  - Cough [None]
  - Tremor [None]
  - Blood pressure increased [None]
  - Peripheral swelling [None]
  - Thrombosis [None]

NARRATIVE: CASE EVENT DATE: 20220524
